FAERS Safety Report 9924709 (Version 2)
Quarter: 2014Q1

REPORT INFORMATION
  Report Type: Spontaneous
  Country: JP (occurrence: JP)
  Receive Date: 20140226
  Receipt Date: 20140226
  Transmission Date: 20141002
  Serious: Yes (Other)
  Sender: FDA-Public Use
  Company Number: JP-ROCHE-1188292

PATIENT
  Age: 60 Year
  Sex: Male

DRUGS (10)
  1. MIRCERA [Suspect]
     Indication: NEPHROGENIC ANAEMIA
     Route: 042
     Dates: start: 20111109, end: 201112
  2. MIRCERA [Suspect]
     Indication: NEPHROGENIC ANAEMIA
     Route: 042
     Dates: start: 20121107, end: 20121107
  3. MIRCERA [Suspect]
     Indication: NEPHROGENIC ANAEMIA
     Route: 042
     Dates: start: 20121205, end: 20121205
  4. NESP [Concomitant]
     Indication: NEPHROGENIC ANAEMIA
     Route: 042
     Dates: start: 20111214, end: 2012
  5. NESP [Concomitant]
     Indication: NEPHROGENIC ANAEMIA
     Route: 042
     Dates: start: 20120509, end: 201207
  6. NESP [Concomitant]
     Indication: NEPHROGENIC ANAEMIA
     Route: 042
     Dates: start: 20120727, end: 201209
  7. NESP [Concomitant]
     Indication: NEPHROGENIC ANAEMIA
     Route: 042
     Dates: start: 20120926, end: 20120926
  8. NESP [Concomitant]
     Indication: NEPHROGENIC ANAEMIA
     Route: 042
     Dates: start: 20121003, end: 2012
  9. NESP [Concomitant]
     Indication: NEPHROGENIC ANAEMIA
     Route: 042
     Dates: start: 20130111, end: 20130111
  10. NESP [Concomitant]
     Indication: NEPHROGENIC ANAEMIA
     Route: 042
     Dates: start: 20130125

REACTIONS (1)
  - Haemoglobin decreased [Recovering/Resolving]
